FAERS Safety Report 11440911 (Version 1)
Quarter: 2015Q3

REPORT INFORMATION
  Report Type: Spontaneous
  Country: US (occurrence: None)
  Receive Date: 20150831
  Receipt Date: 20150831
  Transmission Date: 20151125
  Serious: Yes (Disabling)
  Sender: FDA-Public Use
  Company Number: None

PATIENT
  Age: 19 Year
  Sex: Female
  Weight: 61.69 kg

DRUGS (8)
  1. FOLIC ACID. [Concomitant]
     Active Substance: FOLIC ACID
  2. CALCIUM [Concomitant]
     Active Substance: CALCIUM
  3. CELEXA [Concomitant]
     Active Substance: CITALOPRAM HYDROBROMIDE
  4. ARIPIPRAZOLE. [Suspect]
     Active Substance: ARIPIPRAZOLE
     Indication: ANXIETY
     Dosage: 2/5 MG TAKEN BY MOUTH
     Dates: start: 20150616, end: 20150716
  5. REMICADE [Concomitant]
     Active Substance: INFLIXIMAB
  6. MULTIVITAMIN FOR WOMEN [Concomitant]
  7. CULTURELLE PROBIOTIC [Concomitant]
  8. ORTHO-TRYCYCLENE [Concomitant]

REACTIONS (4)
  - Product substitution issue [None]
  - Mental disorder [None]
  - Fear [None]
  - Personality change [None]

NARRATIVE: CASE EVENT DATE: 20150617
